FAERS Safety Report 12257993 (Version 1)
Quarter: 2016Q2

REPORT INFORMATION
  Report Type: Spontaneous
  Country: US (occurrence: US)
  Receive Date: 20160412
  Receipt Date: 20160412
  Transmission Date: 20160815
  Serious: Yes (Death, Other)
  Sender: FDA-Public Use
  Company Number: US-BAYER-2016-063568

PATIENT
  Sex: Male

DRUGS (1)
  1. ALEVE [Suspect]
     Active Substance: NAPROXEN SODIUM
     Indication: PRODUCT USED FOR UNKNOWN INDICATION

REACTIONS (13)
  - Skin discolouration [None]
  - Cerebrovascular accident [None]
  - Diabetes mellitus [Fatal]
  - Motor dysfunction [None]
  - Nosocomial infection [None]
  - Blood glucose increased [None]
  - Aphasia [None]
  - Movement disorder [None]
  - Mobility decreased [None]
  - Gangrene [None]
  - Altered state of consciousness [None]
  - Feeding disorder [None]
  - Pruritus [None]
